FAERS Safety Report 13641862 (Version 1)
Quarter: 2017Q2

REPORT INFORMATION
  Report Type: Spontaneous
  Country: US (occurrence: US)
  Receive Date: 20170609
  Receipt Date: 20170609
  Transmission Date: 20170830
  Serious: Yes (Hospitalization)
  Sender: FDA-Public Use
  Company Number: None

PATIENT
  Age: 53 Year
  Sex: Female
  Weight: 44.27 kg

DRUGS (4)
  1. WARFARIN [Suspect]
     Active Substance: WARFARIN
     Indication: PULMONARY EMBOLISM
     Dates: start: 20170207, end: 20170508
  2. IBUPROFEN. [Suspect]
     Active Substance: IBUPROFEN
     Indication: PRODUCT USED FOR UNKNOWN INDICATION
  3. IBUPROFEN. [Suspect]
     Active Substance: IBUPROFEN
     Indication: PULMONARY EMBOLISM
  4. WARFARIN [Suspect]
     Active Substance: WARFARIN
     Indication: PRODUCT USED FOR UNKNOWN INDICATION
     Dates: start: 20170207, end: 20170508

REACTIONS (7)
  - Anaemia [None]
  - International normalised ratio increased [None]
  - Blood pressure decreased [None]
  - Extra dose administered [None]
  - Blood potassium decreased [None]
  - Gastric haemorrhage [None]
  - Haematuria [None]

NARRATIVE: CASE EVENT DATE: 20170508
